FAERS Safety Report 7251394-3 (Version None)
Quarter: 2011Q1

REPORT INFORMATION
  Report Type: 
  Country: None (occurrence: None)
  Receive Date: 20110119
  Receipt Date: 20110110
  Transmission Date: 20110831
  Serious: Yes (Hospitalization, Other)
  Sender: FDA-Public Use
  Company Number: 2011S1000012

PATIENT
  Sex: Female

DRUGS (1)
  1. DARVOCET-N 100 [Suspect]
     Indication: PAIN
     Dosage: 100 MG; PRN; PO
     Route: 048
     Dates: start: 19700101, end: 20101001

REACTIONS (2)
  - HEART VALVE INCOMPETENCE [None]
  - PALPITATIONS [None]
